FAERS Safety Report 21440631 (Version 3)
Quarter: 2022Q4

REPORT INFORMATION
  Report Type: Report from Study
  Country: GB (occurrence: GB)
  Receive Date: 20221011
  Receipt Date: 20221109
  Transmission Date: 20230113
  Serious: Yes (Hospitalization, Other)
  Sender: FDA-Public Use
  Company Number: GB-NOVARTISPH-NVSC2022GB227326

PATIENT
  Age: 13 Year
  Sex: Male
  Weight: 44.4 kg

DRUGS (10)
  1. DABRAFENIB [Suspect]
     Active Substance: DABRAFENIB
     Indication: Anaplastic astrocytoma
     Dosage: 100 MG, BID
     Route: 048
     Dates: start: 20211111, end: 20220618
  2. DABRAFENIB [Suspect]
     Active Substance: DABRAFENIB
     Dosage: UNK (RESTARTED AT 60 PERCENT OF FULL DOSE)
     Route: 065
  3. DABRAFENIB [Suspect]
     Active Substance: DABRAFENIB
     Dosage: UNK (INCREASED TO 80 PERCENT AFTER ONE MONTH)
     Route: 065
  4. DABRAFENIB [Suspect]
     Active Substance: DABRAFENIB
     Dosage: UNK (THEN INCREASED TO 100 PERCENT AFTER A FURTHER MONTH)
     Route: 065
  5. TRAMETINIB [Suspect]
     Active Substance: TRAMETINIB
     Indication: Anaplastic astrocytoma
     Dosage: 1 MG, QD
     Route: 048
     Dates: start: 20211111, end: 20220618
  6. TRAMETINIB [Suspect]
     Active Substance: TRAMETINIB
     Dosage: UNK (RESTARTED AT 60 PERCENT OF FULL DOSE)
     Route: 065
  7. TRAMETINIB [Suspect]
     Active Substance: TRAMETINIB
     Dosage: UNK (INCREASED TO 80 PERCENT AFTER ONE MONTH)
     Route: 065
  8. TRAMETINIB [Suspect]
     Active Substance: TRAMETINIB
     Dosage: UNK (THEN INCREASED TO 100 PERCENT AFTER A FURTHER MONTH)
     Route: 065
  9. LEVETIRACETAM [Concomitant]
     Active Substance: LEVETIRACETAM
     Indication: Product used for unknown indication
     Dosage: 430 MG, QD (FORMULATION: LIQUID)
     Route: 048
  10. LEVOMEPROMAZINE [Concomitant]
     Active Substance: LEVOMEPROMAZINE
     Indication: Product used for unknown indication
     Dosage: 6.25 MG, BID (PRN)
     Route: 048

REACTIONS (5)
  - Pancreatitis [Recovered/Resolved]
  - Abdominal pain [Unknown]
  - Anaplastic astrocytoma [Unknown]
  - Malignant neoplasm progression [Unknown]
  - Loss of therapeutic response [Unknown]

NARRATIVE: CASE EVENT DATE: 20220618
